APPROVED DRUG PRODUCT: HYRNUO
Active Ingredient: SEVABERTINIB
Strength: 10MG
Dosage Form/Route: TABLET;ORAL
Application: N219972 | Product #001
Applicant: BAYER HEALTHCARE PHARMACEUTICALS INC
Approved: Nov 19, 2025 | RLD: Yes | RS: Yes | Type: RX

PATENTS:
Patent 10428063 | Expires: Oct 10, 2035

EXCLUSIVITY:
Code: NCE | Date: Nov 19, 2030